FAERS Safety Report 8949778 (Version 2)
Quarter: 2012Q4

REPORT INFORMATION
  Report Type: Report from Study
  Country: JP (occurrence: JP)
  Receive Date: 20121206
  Receipt Date: 20121212
  Transmission Date: 20130627
  Serious: Yes (Other)
  Sender: FDA-Public Use
  Company Number: JP-ASTELLAS-2012JP011233

PATIENT
  Age: 64 Year
  Sex: Female
  Weight: 46 kg

DRUGS (6)
  1. SOLIFENACIN [Suspect]
     Indication: HYPERTONIC BLADDER
     Dosage: 5 mg, UID/QD
     Route: 048
     Dates: start: 20110916, end: 20121128
  2. MEVALOTIN [Concomitant]
     Indication: HYPERLIPIDAEMIA
     Dosage: 20 mg, UID/QD
     Route: 048
  3. ACTONEL [Concomitant]
     Indication: OSTEOPOROSIS
     Dosage: 7.5 mg, UID/QD
     Route: 048
  4. HYPEN                              /00613801/ [Concomitant]
     Indication: OSTEOARTHRITIS
     Dosage: 400 mg, Unknown/D
     Route: 048
  5. SELBEX [Concomitant]
     Indication: GASTRITIS PROPHYLAXIS
     Dosage: 100 mg, UID/QD
     Route: 048
  6. EMPYNASE P [Concomitant]
     Indication: OSTEOARTHRITIS
     Dosage: 36000 IU, UID/QD
     Route: 048

REACTIONS (1)
  - Osteoarthritis [Recovered/Resolved]
